FAERS Safety Report 18891268 (Version 1)
Quarter: 2021Q1

REPORT INFORMATION
  Report Type: Spontaneous
  Country: CA (occurrence: CA)
  Receive Date: 20210215
  Receipt Date: 20210215
  Transmission Date: 20210420
  Serious: Yes (Hospitalization, Other)
  Sender: FDA-Public Use
  Company Number: CA-ROCHE-2765242

PATIENT
  Age: 80 Year
  Sex: Female
  Weight: 55 kg

DRUGS (8)
  1. CLONAZEPAM. [Suspect]
     Active Substance: CLONAZEPAM
     Indication: PRODUCT USED FOR UNKNOWN INDICATION
     Route: 065
  2. ENALAPRIL [Concomitant]
     Active Substance: ENALAPRIL
  3. ATORVASTATIN [Concomitant]
     Active Substance: ATORVASTATIN
  4. METOPROLOL. [Concomitant]
     Active Substance: METOPROLOL
  5. ACETYLSALICYLIC ACID [Concomitant]
     Active Substance: ASPIRIN
  6. GLUCOSAMINE AND CHONDROITIN [Concomitant]
     Active Substance: CHONDROITIN SULFATE (BOVINE)\GLUCOSAMINE HYDROCHLORIDE
  7. HYDROCHLOROTHIAZIDE. [Concomitant]
     Active Substance: HYDROCHLOROTHIAZIDE
  8. XARELTO [Concomitant]
     Active Substance: RIVAROXABAN

REACTIONS (19)
  - Drug hypersensitivity [Unknown]
  - Dyspnoea exertional [Unknown]
  - Rales [Unknown]
  - Renal cyst [Unknown]
  - Hiatus hernia [Unknown]
  - Throat clearing [Unknown]
  - Pulmonary fibrosis [Unknown]
  - Skin cancer [Unknown]
  - Aphonia [Unknown]
  - Dry mouth [Unknown]
  - Joint swelling [Unknown]
  - Forced vital capacity decreased [Unknown]
  - Interstitial lung disease [Unknown]
  - Hepatic cyst [Unknown]
  - Oxygen saturation decreased [Unknown]
  - Cough [Unknown]
  - Coronary artery disease [Unknown]
  - Rhinorrhoea [Unknown]
  - Osteoarthritis [Unknown]

NARRATIVE: CASE EVENT DATE: 2000
